FAERS Safety Report 20181685 (Version 1)
Quarter: 2021Q4

REPORT INFORMATION
  Report Type: Spontaneous
  Country: US (occurrence: None)
  Receive Date: 20211214
  Receipt Date: 20211214
  Transmission Date: 20220303
  Serious: Yes (Hospitalization)
  Sender: FDA-Public Use
  Company Number: None

PATIENT
  Sex: Female

DRUGS (9)
  1. PULMOZYME [Suspect]
     Active Substance: DORNASE ALFA
     Indication: Cystic fibrosis
     Route: 055
     Dates: start: 20211006
  2. CALCIUM [Concomitant]
  3. VIT D [Concomitant]
  4. FERROUS SULF [Concomitant]
  5. GENGRAF [Concomitant]
  6. MYCOPHENOLATE MOFETIL [Concomitant]
  7. PREDNISONE [Concomitant]
     Active Substance: PREDNISONE
  8. PREDNISONE [Concomitant]
  9. TORSEMIDE [Concomitant]

REACTIONS (1)
  - Pneumonia [None]
